FAERS Safety Report 12552529 (Version 1)
Quarter: 2016Q3

REPORT INFORMATION
  Report Type: Spontaneous
  Country: US (occurrence: US)
  Receive Date: 20160713
  Receipt Date: 20160713
  Transmission Date: 20161109
  Serious: No
  Sender: FDA-Public Use
  Company Number: US-PFIZER INC-2016337238

PATIENT
  Age: 48 Year
  Sex: Male
  Weight: 79.9 kg

DRUGS (3)
  1. ZOSYN [Suspect]
     Active Substance: PIPERACILLIN SODIUM\TAZOBACTAM SODIUM
     Indication: PSEUDOMONAS INFECTION
     Dosage: UNK
     Dates: start: 20160506, end: 20160517
  2. MEROPENEM. [Suspect]
     Active Substance: MEROPENEM
     Indication: PSEUDOMONAS INFECTION
     Dosage: UNK
     Dates: start: 20160517, end: 20160531
  3. LEVAQUIN [Suspect]
     Active Substance: LEVOFLOXACIN
     Indication: PSEUDOMONAS INFECTION
     Dosage: UNK
     Dates: start: 20160507, end: 20160511

REACTIONS (2)
  - Drug resistance [Not Recovered/Not Resolved]
  - Pyrexia [Not Recovered/Not Resolved]
